FAERS Safety Report 7286488-X (Version None)
Quarter: 2011Q1

REPORT INFORMATION
  Report Type: 
  Country: None (occurrence: None)
  Receive Date: 20110210
  Receipt Date: 20110204
  Transmission Date: 20110831
  Serious: Yes (Other)
  Sender: FDA-Public Use
  Company Number: JP-ROCHE-731426

PATIENT
  Age: 19 Year
  Sex: Female

DRUGS (26)
  1. MYCOPHENOLATE MOFETIL [Suspect]
     Indication: GRAFT VERSUS HOST DISEASE
     Dosage: THERAPY START DATE: BEFORE THE START OF VALGANCICLOVIR
     Route: 048
  2. PROGRAF [Suspect]
     Indication: GRAFT VERSUS HOST DISEASE
     Dosage: THERAPY START DATE: BEFORE THE START OF VALGANCICLOVIR
     Route: 048
  3. HUMULIN R [Concomitant]
     Dosage: TDD: 14 UT, THERAPY START DATE: BEOFORE START OF VALGANCICLOVIR
     Route: 058
  4. TAKEPRON [Concomitant]
     Dosage: THERAPY START DATE: BEOFORE START OF VALGANCICLOVIR
     Route: 048
     Dates: end: 20100518
  5. VALGANCICLOVIR HCL [Suspect]
     Route: 048
     Dates: start: 20100511, end: 20100513
  6. BAKTAR [Concomitant]
     Dosage: THERAPY START DATE: BEFORE START OF VALGANCICLOVIR
     Route: 048
     Dates: end: 20100511
  7. VFEND [Concomitant]
     Dosage: THERAPY START DATE: BEFORE START OF VALGANCICLOVIR
     Route: 048
  8. HUMULIN N [Concomitant]
     Dosage: HUMUN INSULIN GENETICAL RECOMBINATION, THERAPY DATES: BEFORE START OF VALGANCICLOVIR, TDD:20 UT
     Route: 058
  9. SOL-MELCORT [Concomitant]
     Dosage: THERAPY DATES: BEFORE THE START OF VALGANCICLOVIR
     Route: 042
  10. HEPARINE NOVO [Concomitant]
     Dosage: TDD: 500 UT
     Route: 042
     Dates: start: 20100506, end: 20100506
  11. MIRTAZAPINE [Concomitant]
     Dosage: DRUG NAME: REFLEX (MIRTAZAPINE)
     Route: 048
     Dates: start: 20100506, end: 20100511
  12. VALGANCICLOVIR HCL [Suspect]
     Indication: CYTOMEGALOVIRUS INFECTION
     Route: 048
     Dates: start: 20100505, end: 20100510
  13. NEUTROGIN [Concomitant]
     Route: 041
  14. LENDORMIN [Concomitant]
     Dosage: THERAPY DATES: BEFORE THE START OF VALGANCICLOVIR
     Route: 048
  15. MAXIPIME [Concomitant]
     Route: 042
     Dates: start: 20100510
  16. LASIX [Concomitant]
     Dosage: THERAPY START DATE: BEFORE THE START OF VALGANCICLOVIR
     Route: 048
  17. WYPAX [Concomitant]
     Route: 048
  18. PROGRAF [Suspect]
     Route: 048
  19. HUMALOG [Concomitant]
     Dosage: TDD: 16 UT, THERAPY DATES: BEFORE THE START OF VALGANCICLOVIR
     Route: 058
  20. VANCOMYCIN [Concomitant]
     Route: 041
     Dates: start: 20100511
  21. SILECE [Concomitant]
     Dosage: THERAPY DATES: BEFORE THE START OF VALGANCICLOVIR
     Route: 048
  22. ZOLOFT [Concomitant]
     Dosage: JZOLOFT: SERTALINE HYDROCHLORIDE, THERAPY START DATE:BEFORE START OF VALGANCICLOVIR
     Route: 048
     Dates: end: 20100505
  23. BONALON [Concomitant]
     Dosage: THERAPY START DATE: BEFORE THE START OF VALGANCICLOVIR
     Route: 048
  24. AMLODIPINE [Concomitant]
     Route: 048
  25. EPINASTINE HYDROCHLORIDE [Concomitant]
     Dosage: DRUG NAME REPORTED: ALENAPION , THERAPY START DATE: BEFORE START OF VALGANCICLOVIR
     Route: 048
     Dates: end: 20100511
  26. POLARAMINE [Concomitant]
     Dosage: REPORTED: POLARMINE (CHLORPHENIRAMINE MALAETE), THERAPY START DATE: BEOFORE START OF VALGANCICLOVIR
     Route: 048

REACTIONS (3)
  - STAPHYLOCOCCAL SEPSIS [None]
  - FLUID RETENTION [None]
  - PANCYTOPENIA [None]
